FAERS Safety Report 4945448-1 (Version None)
Quarter: 2006Q1

REPORT INFORMATION
  Report Type: 
  Country: None (occurrence: None)
  Receive Date: 20060316
  Receipt Date: 20060313
  Transmission Date: 20060701
  Serious: Yes (Other)
  Sender: FDA-Public Use
  Company Number: US-GLAXOSMITHKLINE-A0597735A

PATIENT
  Age: 51 Year
  Sex: Female

DRUGS (5)
  1. COMPAZINE [Suspect]
     Indication: DRUG USE FOR UNKNOWN INDICATION
     Route: 065
  2. CLOZAPINE [Suspect]
     Indication: BIPOLAR DISORDER
     Dosage: 250MG PER DAY
     Route: 048
     Dates: start: 20021001, end: 20051122
  3. PLAQUENIL [Suspect]
     Indication: DRUG USE FOR UNKNOWN INDICATION
     Route: 065
  4. IMIPRAMINE [Suspect]
     Indication: DRUG USE FOR UNKNOWN INDICATION
     Route: 065
  5. RADIATION [Suspect]
     Indication: UTERINE CANCER

REACTIONS (4)
  - GRANULOCYTOPENIA [None]
  - LEUKOPENIA [None]
  - PARVOVIRUS INFECTION [None]
  - THROMBOCYTOPENIA [None]
